FAERS Safety Report 15089764 (Version 3)
Quarter: 2018Q2

REPORT INFORMATION
  Report Type: Report from Study
  Country: DE (occurrence: DE)
  Receive Date: 20180629
  Receipt Date: 20180630
  Transmission Date: 20180711
  Serious: Yes (Death, Life-Threatening, Hospitalization, Other)
  Sender: FDA-Public Use
  Company Number: DE-TEVA-2018-DE-914760

PATIENT
  Age: 56 Year
  Sex: Female
  Weight: 49 kg

DRUGS (57)
  1. OXALIPLATIN. [Suspect]
     Active Substance: OXALIPLATIN
     Indication: COLORECTAL CANCER
     Route: 042
     Dates: start: 20160212, end: 20160212
  2. IRINOTECAN [Suspect]
     Active Substance: IRINOTECAN
     Indication: COLORECTAL CANCER
     Route: 042
     Dates: start: 20150603, end: 20150630
  3. BEVACIZUMAB. [Suspect]
     Active Substance: BEVACIZUMAB
     Route: 042
     Dates: start: 20160212, end: 20160212
  4. BEVACIZUMAB. [Suspect]
     Active Substance: BEVACIZUMAB
     Route: 042
  5. NOVALGIN (METAMIZOLE SODIUM) [Concomitant]
     Active Substance: METAMIZOLE SODIUM
     Dosage: 1 GRAM DAILY;
     Route: 042
     Dates: start: 20160225, end: 20160226
  6. FLUOROURACIL. [Suspect]
     Active Substance: FLUOROURACIL
     Dosage: 3510 MILLIGRAM DAILY;
     Route: 042
     Dates: start: 20160126, end: 20160127
  7. FLUOROURACIL. [Suspect]
     Active Substance: FLUOROURACIL
     Route: 040
     Dates: start: 20151124, end: 20151124
  8. FLUOROURACIL. [Suspect]
     Active Substance: FLUOROURACIL
     Route: 040
     Dates: start: 20160108, end: 20160112
  9. FOLINIC ACID [Suspect]
     Active Substance: LEUCOVORIN
     Indication: COLORECTAL CANCER
     Route: 042
     Dates: start: 20150903, end: 20151104
  10. NOVAMINSULFON [Concomitant]
     Active Substance: METAMIZOLE
     Route: 042
     Dates: start: 20150901, end: 20150902
  11. NOVAMINSULFON [Concomitant]
     Active Substance: METAMIZOLE
     Route: 042
     Dates: start: 20160225, end: 20160226
  12. HALOPERIDOL. [Concomitant]
     Active Substance: HALOPERIDOL
     Route: 042
     Dates: start: 20150826, end: 20150831
  13. FLUOROURACIL. [Suspect]
     Active Substance: FLUOROURACIL
     Route: 041
     Dates: start: 20150603, end: 20150805
  14. MIRTAZAPIN [Concomitant]
     Active Substance: MIRTAZAPINE
     Indication: ADJUSTMENT DISORDER WITH DEPRESSED MOOD
     Dosage: 15 MILLIGRAM DAILY;
     Route: 048
     Dates: start: 20150605, end: 20151208
  15. NEXIUM [Concomitant]
     Active Substance: ESOMEPRAZOLE MAGNESIUM
     Route: 042
     Dates: start: 20160225
  16. FLUOROURACIL. [Suspect]
     Active Substance: FLUOROURACIL
     Route: 040
     Dates: start: 20160126, end: 20160126
  17. OXALIPLATIN. [Suspect]
     Active Substance: OXALIPLATIN
     Route: 042
     Dates: start: 20151124, end: 20151124
  18. OXALIPLATIN. [Suspect]
     Active Substance: OXALIPLATIN
     Dosage: 1DF
     Route: 042
     Dates: start: 20150603, end: 20150805
  19. OXALIPLATIN. [Suspect]
     Active Substance: OXALIPLATIN
     Route: 042
     Dates: start: 20160108, end: 20160212
  20. IRINOTECAN [Suspect]
     Active Substance: IRINOTECAN
     Route: 042
     Dates: start: 20150723, end: 20150805
  21. BEVACIZUMAB. [Suspect]
     Active Substance: BEVACIZUMAB
     Indication: COLORECTAL CANCER
     Dosage: DATE OF LAST DOSE PRIOR TO SAE: 30/JUN/2015?5 MG/KG
     Route: 042
     Dates: start: 20150603, end: 20151124
  22. NOVAMINSULFON [Concomitant]
     Active Substance: METAMIZOLE
     Indication: COLORECTAL CANCER METASTATIC
     Route: 065
  23. NOVAMINSULFON [Concomitant]
     Active Substance: METAMIZOLE
     Route: 048
     Dates: start: 20150902, end: 20151103
  24. HALOPERIDOL. [Concomitant]
     Active Substance: HALOPERIDOL
     Dosage: 5 GTT DAILY;
     Route: 048
     Dates: start: 20150902, end: 201511
  25. MIRTAZAPIN [Concomitant]
     Active Substance: MIRTAZAPINE
     Dosage: 15 MILLIGRAM DAILY;
     Route: 048
  26. NOVALGIN (METAMIZOLE SODIUM) [Concomitant]
     Active Substance: METAMIZOLE SODIUM
     Indication: BACK PAIN
     Dosage: 500 MILLIGRAM DAILY;
     Route: 048
     Dates: start: 20150902
  27. NOVALGIN (METAMIZOLE SODIUM) [Concomitant]
     Active Substance: METAMIZOLE SODIUM
     Dosage: 5000 MILLIGRAM DAILY;
     Route: 042
     Dates: start: 20150721, end: 20150821
  28. BEPANTHENE [Concomitant]
     Active Substance: DEXPANTHENOL
     Indication: MUCOSAL INFLAMMATION
     Route: 065
  29. NEXIUM [Concomitant]
     Active Substance: ESOMEPRAZOLE MAGNESIUM
     Indication: PROPHYLAXIS
     Dosage: 40 MILLIGRAM DAILY;
     Route: 048
     Dates: start: 20150602, end: 20160224
  30. PEGFILGRASTIM [Concomitant]
     Active Substance: PEGFILGRASTIM
     Indication: PROPHYLAXIS
     Dosage: 6 MILLIGRAM DAILY; SINCE 2ND CYCLE OF THERAPY.
     Route: 058
     Dates: start: 20150620, end: 20151023
  31. ONDANSETRON [Concomitant]
     Active Substance: ONDANSETRON
     Indication: NAUSEA
     Dosage: 8 MILLIGRAM DAILY;
     Route: 048
     Dates: start: 20150604
  32. EFFENTORA [Concomitant]
     Active Substance: FENTANYL CITRATE
     Indication: PAIN
     Route: 048
     Dates: end: 20150721
  33. FLUOROURACIL. [Suspect]
     Active Substance: FLUOROURACIL
     Route: 042
     Dates: start: 20151124, end: 20151126
  34. FLUOROURACIL. [Suspect]
     Active Substance: FLUOROURACIL
     Dosage: 304-312 MG
     Route: 040
     Dates: start: 20151124, end: 20160212
  35. FLUOROURACIL. [Suspect]
     Active Substance: FLUOROURACIL
     Route: 042
     Dates: start: 20160108, end: 20160110
  36. HALOPERIDOL. [Concomitant]
     Active Substance: HALOPERIDOL
     Route: 042
     Dates: start: 20150810, end: 20150826
  37. HALOPERIDOL. [Concomitant]
     Active Substance: HALOPERIDOL
     Dosage: .03 MILLIGRAM DAILY;
     Route: 042
     Dates: start: 20150901, end: 20150902
  38. ZOFRAN [Concomitant]
     Active Substance: ONDANSETRON HYDROCHLORIDE
     Indication: VOMITING
     Dosage: 8 GRAM DAILY; 1-0-0
     Route: 048
     Dates: start: 20150605
  39. FOLINIC ACID [Suspect]
     Active Substance: LEUCOVORIN
     Route: 042
     Dates: start: 20150603, end: 20150805
  40. OXALIPLATIN. [Suspect]
     Active Substance: OXALIPLATIN
     Route: 042
     Dates: start: 20160126, end: 20160126
  41. NOVAMINSULFON [Concomitant]
     Active Substance: METAMIZOLE
     Route: 042
     Dates: start: 20150831, end: 20150901
  42. KEPPRA [Concomitant]
     Active Substance: LEVETIRACETAM
     Dosage: 500 MILLIGRAM DAILY;
     Route: 042
     Dates: start: 20160301
  43. FLUOROURACIL. [Suspect]
     Active Substance: FLUOROURACIL
     Route: 040
     Dates: start: 20150903, end: 20151104
  44. FOLINIC ACID [Suspect]
     Active Substance: LEUCOVORIN
     Dosage: 240-468 MG
     Route: 042
     Dates: start: 20150603, end: 20160212
  45. FOLINIC ACID [Suspect]
     Active Substance: LEUCOVORIN
     Route: 042
     Dates: start: 20151124, end: 20151124
  46. NOVAMINSULFON [Concomitant]
     Active Substance: METAMIZOLE
     Route: 042
     Dates: start: 20150810, end: 20150826
  47. NOVAMINSULFON [Concomitant]
     Active Substance: METAMIZOLE
     Route: 048
     Dates: start: 20160212
  48. NOVAMINSULFON [Concomitant]
     Active Substance: METAMIZOLE
     Route: 042
     Dates: start: 20160225, end: 20160225
  49. HALOPERIDOL. [Concomitant]
     Active Substance: HALOPERIDOL
     Route: 042
     Dates: start: 20150721, end: 20150810
  50. BEPANTHENE [Concomitant]
     Active Substance: DEXPANTHENOL
     Indication: PROPHYLAXIS
     Dosage: 1-1-1
     Route: 048
  51. FLUOROURACIL. [Suspect]
     Active Substance: FLUOROURACIL
     Route: 041
     Dates: start: 20150903, end: 20151106
  52. FOLINIC ACID [Suspect]
     Active Substance: LEUCOVORIN
     Route: 042
     Dates: start: 20160108, end: 20160212
  53. FOLINIC ACID [Suspect]
     Active Substance: LEUCOVORIN
     Route: 042
     Dates: start: 20160126, end: 20160126
  54. OXALIPLATIN. [Suspect]
     Active Substance: OXALIPLATIN
     Route: 042
     Dates: start: 20150903, end: 20151104
  55. NOVAMINSULFON [Concomitant]
     Active Substance: METAMIZOLE
     Route: 042
     Dates: start: 20150826, end: 20150831
  56. HALOPERIDOL. [Concomitant]
     Active Substance: HALOPERIDOL
     Dosage: .04 MILLIGRAM DAILY;
     Route: 042
     Dates: start: 20150831, end: 20150901
  57. NOVALGIN (METAMIZOLE SODIUM) [Concomitant]
     Active Substance: METAMIZOLE SODIUM
     Indication: TUMOUR PAIN
     Dosage: 500 MILLIGRAM DAILY;
     Route: 048
     Dates: start: 20150602, end: 20150728

REACTIONS (9)
  - Optic nerve disorder [Unknown]
  - Neutropenia [Recovered/Resolved]
  - Overdose [Unknown]
  - Metastases to meninges [Recovering/Resolving]
  - Disturbance in attention [Fatal]
  - Pneumonia [Recovered/Resolved]
  - Headache [Not Recovered/Not Resolved]
  - Pulmonary embolism [Recovered/Resolved]
  - Venous thrombosis limb [Recovered/Resolved]

NARRATIVE: CASE EVENT DATE: 20150617
